FAERS Safety Report 17605619 (Version 1)
Quarter: 2020Q1

REPORT INFORMATION
  Report Type: Report from Study
  Country: CH (occurrence: CH)
  Receive Date: 20200331
  Receipt Date: 20200331
  Transmission Date: 20200409
  Serious: Yes (Congenital Anomaly)
  Sender: FDA-Public Use
  Company Number: CH-TEVA-2020-CH-1215128

PATIENT

DRUGS (5)
  1. LERCANIDIPINE [Suspect]
     Active Substance: LERCANIDIPINE
     Route: 064
  2. METOPROLOL. [Suspect]
     Active Substance: METOPROLOL
     Route: 064
  3. AZATHIOPRINE. [Suspect]
     Active Substance: AZATHIOPRINE
     Route: 064
  4. PREDNISONE. [Suspect]
     Active Substance: PREDNISONE
     Route: 064
  5. CANDESARTAN. [Suspect]
     Active Substance: CANDESARTAN
     Route: 064

REACTIONS (2)
  - Foetal exposure during pregnancy [Unknown]
  - Atrial septal defect [Unknown]
